FAERS Safety Report 4879034-9 (Version None)
Quarter: 2006Q1

REPORT INFORMATION
  Report Type: 
  Country: None (occurrence: None)
  Receive Date: 20060112
  Receipt Date: 20060102
  Transmission Date: 20060701
  Serious: Yes (Hospitalization, Other)
  Sender: FDA-Public Use
  Company Number: FR-NOVOPROD-249722

PATIENT
  Age: 69 Year
  Sex: Female
  Weight: 58 kg

DRUGS (6)
  1. NOVOLOG MIX 70/30 [Suspect]
     Indication: DIABETES MELLITUS INSULIN-DEPENDENT
     Dosage: 29 IU, UNK
     Route: 058
  2. BISOPROLOL [Concomitant]
     Dosage: 5 MG, UNK
     Route: 048
  3. KARDEGIC [Concomitant]
     Dosage: 75 MG, UNK
     Route: 048
  4. AMLOR [Concomitant]
     Dosage: 10 MG, UNK
     Route: 048
  5. TAHOR [Concomitant]
     Dosage: 1 DOSE PER DAY
     Route: 048
  6. MOPRAL [Concomitant]
     Dosage: 20 MG, UNK
     Route: 048

REACTIONS (4)
  - ABDOMINAL PAIN [None]
  - DIARRHOEA [None]
  - FALL [None]
  - HYPOGLYCAEMIA [None]
